FAERS Safety Report 7523789-1 (Version None)
Quarter: 2011Q2

REPORT INFORMATION
  Report Type: 
  Country: None (occurrence: None)
  Receive Date: 20110603
  Receipt Date: 20101211
  Transmission Date: 20111010
  Serious: Yes (Hospitalization)
  Sender: FDA-Public Use
  Company Number: RU-AMGEN-UK375429

PATIENT
  Age: 75 Year
  Sex: Male

DRUGS (5)
  1. BICALUTAMIDE [Concomitant]
     Dosage: 150 MG, QD
     Route: 048
     Dates: start: 20060920
  2. ENALAPRIL MALEATE [Concomitant]
     Dosage: 10 MG, BID
     Route: 048
     Dates: start: 20060601
  3. DENOSUMAB [Suspect]
     Indication: PROSTATE CANCER
     Dosage: UNK UNK, Q4WK
     Route: 058
     Dates: start: 20061017, end: 20090916
  4. ERGOCALCIFEROL [Concomitant]
     Dosage: 400 IU, QD
     Route: 048
     Dates: start: 20061017
  5. CALCIUM CARBONATE [Concomitant]
     Dosage: 500 MG, QD
     Route: 048
     Dates: start: 20061017

REACTIONS (3)
  - OSTEOMYELITIS [None]
  - TOOTH DISORDER [None]
  - CHRONIC SINUSITIS [None]
